FAERS Safety Report 4378448-3 (Version None)
Quarter: 2004Q2

REPORT INFORMATION
  Report Type: 
  Country: None (occurrence: None)
  Receive Date: 20040609
  Receipt Date: 20040527
  Transmission Date: 20050107
  Serious: Yes (Disabling)
  Sender: FDA-Public Use
  Company Number: US-JNJFOC-20040303419

PATIENT
  Age: 61 Year
  Sex: Female
  Weight: 44.4525 kg

DRUGS (8)
  1. REMICADE [Suspect]
     Indication: RHEUMATOID ARTHRITIS
     Dosage: 5 MG/KG, 1 IN 1 D, INTRAVENOUS
     Route: 042
     Dates: start: 20040101
  2. PREDNISONE TAB [Concomitant]
  3. CELEBREX [Concomitant]
  4. OXYCONTIN [Concomitant]
  5. ARAVA [Concomitant]
  6. ACTONEL [Concomitant]
  7. DITROPAN [Concomitant]
  8. WELLBUTRIN [Concomitant]

REACTIONS (5)
  - ALPHA 1 GLOBULIN INCREASED [None]
  - ASTHENIA [None]
  - BLOOD IMMUNOGLOBULIN G INCREASED [None]
  - DEMYELINATING POLYNEUROPATHY [None]
  - ELECTROPHORESIS PROTEIN ABNORMAL [None]
